FAERS Safety Report 25792795 (Version 1)
Quarter: 2025Q3

REPORT INFORMATION
  Report Type: Spontaneous
  Country: EU (occurrence: EU)
  Receive Date: 20250911
  Receipt Date: 20250911
  Transmission Date: 20251021
  Serious: Yes (Hospitalization)
  Sender: MYLAN
  Company Number: EU-MYLANLABS-2025M1077678

PATIENT
  Sex: Male

DRUGS (20)
  1. CLOZARIL [Suspect]
     Active Substance: CLOZAPINE
     Indication: Schizophrenia
     Dosage: 250 MILLIGRAM, BID
     Dates: start: 20230502, end: 202503
  2. CLOZARIL [Suspect]
     Active Substance: CLOZAPINE
     Dosage: 250 MILLIGRAM, BID
     Dates: start: 20230502, end: 202503
  3. CLOZARIL [Suspect]
     Active Substance: CLOZAPINE
     Dosage: 250 MILLIGRAM, BID
     Route: 048
     Dates: start: 20230502, end: 202503
  4. CLOZARIL [Suspect]
     Active Substance: CLOZAPINE
     Dosage: 250 MILLIGRAM, BID
     Route: 048
     Dates: start: 20230502, end: 202503
  5. CLOZARIL [Suspect]
     Active Substance: CLOZAPINE
  6. CLOZARIL [Suspect]
     Active Substance: CLOZAPINE
  7. CLOZARIL [Suspect]
     Active Substance: CLOZAPINE
     Route: 048
  8. CLOZARIL [Suspect]
     Active Substance: CLOZAPINE
     Route: 048
  9. ARIPIPRAZOLE [Suspect]
     Active Substance: ARIPIPRAZOLE
     Indication: Product used for unknown indication
     Dosage: 30 MILLIGRAM, AM (MANE)
  10. ARIPIPRAZOLE [Suspect]
     Active Substance: ARIPIPRAZOLE
     Dosage: 30 MILLIGRAM, AM (MANE)
     Route: 065
  11. ARIPIPRAZOLE [Suspect]
     Active Substance: ARIPIPRAZOLE
     Dosage: 30 MILLIGRAM, AM (MANE)
     Route: 065
  12. ARIPIPRAZOLE [Suspect]
     Active Substance: ARIPIPRAZOLE
     Dosage: 30 MILLIGRAM, AM (MANE)
  13. OLANZAPINE [Suspect]
     Active Substance: OLANZAPINE
     Indication: Product used for unknown indication
  14. OLANZAPINE [Suspect]
     Active Substance: OLANZAPINE
  15. OLANZAPINE [Suspect]
     Active Substance: OLANZAPINE
     Route: 065
  16. OLANZAPINE [Suspect]
     Active Substance: OLANZAPINE
     Route: 065
  17. OLANZAPINE [Suspect]
     Active Substance: OLANZAPINE
  18. OLANZAPINE [Suspect]
     Active Substance: OLANZAPINE
  19. OLANZAPINE [Suspect]
     Active Substance: OLANZAPINE
     Route: 065
  20. OLANZAPINE [Suspect]
     Active Substance: OLANZAPINE
     Route: 065

REACTIONS (1)
  - Hospitalisation [Unknown]
